FAERS Safety Report 4969774-5 (Version None)
Quarter: 2006Q2

REPORT INFORMATION
  Report Type: 
  Country: None (occurrence: None)
  Receive Date: 20060411
  Receipt Date: 20051013
  Transmission Date: 20061013
  Serious: Yes (Hospitalization, Other)
  Sender: FDA-Public Use
  Company Number: PR-MERCK-0510USA07315

PATIENT
  Age: 40 Year
  Sex: Male
  Weight: 80 kg

DRUGS (2)
  1. VIOXX [Suspect]
     Indication: NECK PAIN
     Route: 048
     Dates: start: 19990601, end: 20020201
  2. VIOXX [Suspect]
     Indication: BACK PAIN
     Route: 048
     Dates: start: 19990601, end: 20020201

REACTIONS (13)
  - ABDOMINAL PAIN UPPER [None]
  - ANGINA PECTORIS [None]
  - ANXIETY [None]
  - BLOOD TRIGLYCERIDES INCREASED [None]
  - CEREBROVASCULAR ACCIDENT [None]
  - CONVULSION [None]
  - DEPRESSION [None]
  - HYPERTENSION [None]
  - MULTIPLE SCLEROSIS [None]
  - PANCREATITIS [None]
  - PNEUMONIA [None]
  - STOMACH DISCOMFORT [None]
  - TYPE III IMMUNE COMPLEX MEDIATED REACTION [None]
